FAERS Safety Report 7689571-X (Version None)
Quarter: 2011Q3

REPORT INFORMATION
  Report Type: 
  Country: None (occurrence: None)
  Receive Date: 20110811
  Receipt Date: 20110728
  Transmission Date: 20111222
  Serious: Yes (Other)
  Sender: FDA-Public Use
  Company Number: AUR-APL-2011-03940

PATIENT
  Sex: Male

DRUGS (1)
  1. METOPROLOL TARTRATE [Suspect]
     Indication: HEART RATE IRREGULAR
     Dosage: 2 IN 1 D

REACTIONS (6)
  - ASTHENIA [None]
  - VESTIBULAR DISORDER [None]
  - DIZZINESS [None]
  - DRY THROAT [None]
  - AGEUSIA [None]
  - BALANCE DISORDER [None]
